FAERS Safety Report 6775207-9 (Version None)
Quarter: 2010Q2

REPORT INFORMATION
  Report Type: 
  Country: None (occurrence: None)
  Receive Date: 20100615
  Receipt Date: 20100615
  Transmission Date: 20101027
  Serious: No
  Sender: FDA-Public Use
  Company Number: None

PATIENT
  Sex: Female
  Weight: 61.2356 kg

DRUGS (1)
  1. VENLAFAXINE [Suspect]
     Indication: SENILE DEMENTIA
     Dosage: 37.5 MG 2 PO
     Route: 048
     Dates: start: 20100504, end: 20100605

REACTIONS (5)
  - ASTHENIA [None]
  - DEPRESSION [None]
  - DIARRHOEA [None]
  - IMPAIRED SELF-CARE [None]
  - SUICIDAL IDEATION [None]
